FAERS Safety Report 10060475 (Version 3)
Quarter: 2014Q2

REPORT INFORMATION
  Report Type: Spontaneous
  Country: JP (occurrence: JP)
  Receive Date: 20140404
  Receipt Date: 20140529
  Transmission Date: 20141212
  Serious: Yes (Other)
  Sender: FDA-Public Use
  Company Number: JP-OTSUKA-JP-2014-12814

PATIENT
  Age: 62 Year
  Sex: Male

DRUGS (12)
  1. SAMSCA [Suspect]
     Indication: OEDEMA DUE TO HEPATIC DISEASE
     Dosage: 7.5 MG MILLIGRAM(S), DAILY DOSE
     Route: 048
     Dates: start: 20140319, end: 20140323
  2. SAMSCA [Suspect]
     Indication: OEDEMA PERIPHERAL
  3. SAMSCA [Suspect]
     Indication: ASCITES
  4. LASIX [Concomitant]
     Dosage: 20 MG MILLIGRAM(S), DAILY DOSE
     Route: 042
  5. AMINOLEBAN [Concomitant]
     Indication: AMMONIA INCREASED
     Route: 041
  6. PORTOLAC [Concomitant]
     Indication: AMMONIA INCREASED
     Dosage: UNK
     Route: 048
  7. ALDACTONE A [Concomitant]
     Dosage: 25 MG MILLIGRAM(S), DAILY DOSE
     Route: 048
  8. MADOPAR [Concomitant]
     Dosage: 3 DF DOSAGE FORM, DAILY DOSE
     Route: 048
  9. CELECOX [Concomitant]
     Route: 048
  10. URSO [Concomitant]
     Route: 048
  11. ALBUMIN [Concomitant]
     Indication: OEDEMA DUE TO HEPATIC DISEASE
     Route: 041
  12. ALBUMIN [Concomitant]
     Indication: ASCITES

REACTIONS (5)
  - Aspartate aminotransferase increased [Unknown]
  - Alanine aminotransferase increased [Unknown]
  - Renal impairment [Not Recovered/Not Resolved]
  - Blood potassium increased [Unknown]
  - Fall [Unknown]
